FAERS Safety Report 7451407-X (Version None)
Quarter: 2011Q2

REPORT INFORMATION
  Report Type: 
  Country: None (occurrence: None)
  Receive Date: 20110502
  Receipt Date: 20110427
  Transmission Date: 20111010
  Serious: Yes (Hospitalization)
  Sender: FDA-Public Use
  Company Number: US-PFIZER INC-2011089663

PATIENT
  Sex: Female

DRUGS (27)
  1. SULFAMETHOXAZOLE [Suspect]
  2. VITAMIN C [Concomitant]
     Dosage: 1000 MG, UNK
  3. PROTONIX [Suspect]
     Dosage: UNK
  4. TOBI [Suspect]
     Dosage: 300 MG, 2X/DAY
     Route: 055
  5. ALBUTEROL [Concomitant]
  6. FLEXERIL [Concomitant]
  7. IBANDRONATE SODIUM [Concomitant]
  8. IRON [Concomitant]
  9. SKELAXIN [Suspect]
  10. VIOXX [Suspect]
  11. ASTELIN [Concomitant]
  12. VITAMIN D [Concomitant]
     Dosage: 2000 IU, UNK
  13. CALCIUM [Concomitant]
  14. QVAR 40 [Concomitant]
  15. BUTALBITAL AND CAFFEINE AND PARACETAMOL [Concomitant]
  16. ACIPHEX [Concomitant]
  17. ACIDOPHILUS ^ZYMA^ [Concomitant]
  18. ALPHA LIPOIC ACID [Concomitant]
  19. MISOPROSTOL [Concomitant]
  20. DUONEB [Concomitant]
  21. DIPHENHYDRAMINE [Concomitant]
  22. NAPROXEN [Concomitant]
  23. VITAMIN E [Concomitant]
     Dosage: 400 GY.
  24. XOPENEX [Concomitant]
  25. THEOPHYLLINE [Concomitant]
  26. PATANOL [Concomitant]
  27. MAGNESIUM [Concomitant]

REACTIONS (5)
  - ANAEMIA [None]
  - CEREBROVASCULAR ACCIDENT [None]
  - NAUSEA [None]
  - GASTRIC ULCER [None]
  - MUSCLE SPASMS [None]
